FAERS Safety Report 15351740 (Version 1)
Quarter: 2018Q3

REPORT INFORMATION
  Report Type: Spontaneous
  Country: MX (occurrence: MX)
  Receive Date: 20180905
  Receipt Date: 20180905
  Transmission Date: 20181010
  Serious: Yes (Other)
  Sender: FDA-Public Use
  Company Number: MX-MYLANLABS-2018M1064701

PATIENT
  Age: 20 Year
  Sex: Male

DRUGS (2)
  1. ETOPOSIDE. [Suspect]
     Active Substance: ETOPOSIDE
     Indication: OSTEOSARCOMA METASTATIC
     Dosage: RECEIVED FOR ONE CYCLE
     Route: 065
  2. IFOSFAMIDE. [Suspect]
     Active Substance: IFOSFAMIDE
     Indication: OSTEOSARCOMA METASTATIC
     Dosage: RECEIVED FOR ONE CYCLE
     Route: 065

REACTIONS (4)
  - Performance status decreased [Unknown]
  - Hypovolaemic shock [Unknown]
  - Haemoptysis [Unknown]
  - Haematotoxicity [Unknown]
